FAERS Safety Report 11022217 (Version 1)
Quarter: 2015Q2

REPORT INFORMATION
  Report Type: Spontaneous
  Country: US (occurrence: US)
  Receive Date: 20150413
  Receipt Date: 20150413
  Transmission Date: 20150821
  Serious: No
  Sender: FDA-Public Use
  Company Number: US-ELI_LILLY_AND_COMPANY-US201503008713

PATIENT
  Sex: Male

DRUGS (1)
  1. STRATTERA [Suspect]
     Active Substance: ATOMOXETINE HYDROCHLORIDE
     Indication: ATTENTION DEFICIT/HYPERACTIVITY DISORDER
     Dosage: 80MG, DAILY
     Route: 048
     Dates: start: 2005

REACTIONS (4)
  - Confusional state [Unknown]
  - Parosmia [Unknown]
  - Dysarthria [Unknown]
  - Pain [Unknown]

NARRATIVE: CASE EVENT DATE: 2011
